FAERS Safety Report 6197365-X (Version None)
Quarter: 2009Q2

REPORT INFORMATION
  Report Type: 
  Country: None (occurrence: None)
  Receive Date: 20090518
  Receipt Date: 20090507
  Transmission Date: 20091009
  Serious: Yes (Hospitalization, Other)
  Sender: FDA-Public Use
  Company Number: 2008US002898

PATIENT
  Age: 50 Year
  Sex: Male
  Weight: 136.1 kg

DRUGS (1)
  1. AMEVIVE [Suspect]
     Indication: PSORIASIS
     Dosage: 7.5 MG, WEEKLY, INTRAMUSCULAR
     Route: 030
     Dates: start: 20050907

REACTIONS (4)
  - BASAL CELL CARCINOMA [None]
  - CELLULITIS STAPHYLOCOCCAL [None]
  - DRUG INEFFECTIVE [None]
  - SQUAMOUS CELL CARCINOMA [None]
